FAERS Safety Report 20089060 (Version 2)
Quarter: 2021Q4

REPORT INFORMATION
  Report Type: Report from Study
  Country: BG (occurrence: BG)
  Receive Date: 20211119
  Receipt Date: 20211222
  Transmission Date: 20220303
  Serious: Yes (Hospitalization)
  Sender: FDA-Public Use
  Company Number: BG-ABBVIE-21K-022-4163804-00

PATIENT
  Age: 52 Year
  Sex: Female

DRUGS (1)
  1. VENETOCLAX [Suspect]
     Active Substance: VENETOCLAX
     Indication: Chronic lymphocytic leukaemia
     Route: 048
     Dates: start: 202007, end: 202101

REACTIONS (2)
  - Bronchopulmonary aspergillosis [Recovering/Resolving]
  - Pneumonia staphylococcal [Recovering/Resolving]
